FAERS Safety Report 8619399-5 (Version None)
Quarter: 2012Q3

REPORT INFORMATION
  Report Type: 
  Country: None (occurrence: None)
  Receive Date: 20120824
  Receipt Date: 20120824
  Transmission Date: 20120928
  Serious: Yes (Other)
  Sender: FDA-Public Use
  Company Number: JP-PFIZER INC-2012202951

PATIENT
  Age: 47 Year
  Sex: Male

DRUGS (1)
  1. ATARAX [Suspect]
     Route: 048

REACTIONS (1)
  - GASTRIC FISTULA [None]
